FAERS Safety Report 15016110 (Version 1)
Quarter: 2018Q2

REPORT INFORMATION
  Report Type: Report from Study
  Country: US (occurrence: US)
  Receive Date: 20180615
  Receipt Date: 20180615
  Transmission Date: 20180711
  Serious: Yes (Other)
  Sender: FDA-Public Use
  Company Number: US-JNJFOC-20180616621

PATIENT
  Sex: Male

DRUGS (7)
  1. ALFUZOSIN [Concomitant]
     Active Substance: ALFUZOSIN
  2. FINASTERIDE. [Concomitant]
     Active Substance: FINASTERIDE
  3. IMBRUVICA [Suspect]
     Active Substance: IBRUTINIB
     Indication: CHRONIC LYMPHOCYTIC LEUKAEMIA
     Route: 048
     Dates: start: 20180419
  4. LOSARTAN. [Concomitant]
     Active Substance: LOSARTAN
  5. CARVEDILOL. [Concomitant]
     Active Substance: CARVEDILOL
  6. LOVASTATIN. [Concomitant]
     Active Substance: LOVASTATIN
  7. ASPIRIN. [Concomitant]
     Active Substance: ASPIRIN

REACTIONS (2)
  - Swelling face [Unknown]
  - Eye haemorrhage [Unknown]
